FAERS Safety Report 8963224 (Version 2)
Quarter: 2014Q2

REPORT INFORMATION
  Report Type: Report from Study
  Country: BE (occurrence: BE)
  Receive Date: 20121214
  Receipt Date: 20131018
  Transmission Date: 20141212
  Serious: Yes (Hospitalization, Other)
  Sender: FDA-Public Use
  Company Number: BE-PFIZER INC-2012310959

PATIENT
  Age: 63 Year
  Sex: Male
  Weight: 64 kg

DRUGS (34)
  1. METHYLPREDNISOLONE SODIUM SUCCINATE [Suspect]
     Indication: PROPHYLAXIS AGAINST TRANSPLANT REJECTION
     Dosage: 262 MG, 2X/DAY
     Route: 042
     Dates: start: 20041121, end: 20041121
  2. METHYLPREDNISOLONE SODIUM SUCCINATE [Suspect]
     Dosage: 40 MG, 1X/DAY
     Route: 042
     Dates: start: 20041122
  3. METHYLPREDNISOLONE [Suspect]
     Indication: PROPHYLAXIS AGAINST TRANSPLANT REJECTION
     Dosage: 16 MG, 1X/DAY
     Route: 048
     Dates: start: 20041123
  4. METHYLPREDNISOLONE [Suspect]
     Dosage: 12 MG, 1X/DAY
     Dates: start: 20041216
  5. METHYLPREDNISOLONE [Suspect]
     Dosage: 8 MG, 1X/DAY
     Dates: start: 20050106
  6. METHYLPREDNISOLONE [Suspect]
     Dosage: 6 MG, 1X/DAY
     Dates: start: 20050215
  7. METHYLPREDNISOLONE [Suspect]
     Dosage: 4 MG, 1X/DAY
     Route: 048
     Dates: start: 20050324
  8. LEVOFLOXACIN [Suspect]
     Indication: URINARY TRACT INFECTION
     Dosage: 500 MG, 1X/DAY
     Route: 042
     Dates: start: 20050109, end: 20050111
  9. MYCOPHENOLATE MOFETIL [Suspect]
     Indication: PROPHYLAXIS AGAINST TRANSPLANT REJECTION
     Dosage: 1 G, 2X/DAY
     Route: 048
     Dates: start: 20041121
  10. CICLOSPORIN [Suspect]
     Indication: PROPHYLAXIS AGAINST TRANSPLANT REJECTION
     Dosage: 250 MG, 2X/DAY
     Route: 048
     Dates: start: 20041121
  11. CICLOSPORIN [Suspect]
     Dosage: 125 MG, 1X/DAY
     Dates: start: 20041123
  12. CICLOSPORIN [Suspect]
     Dosage: 125 MG, 2X/DAY
     Route: 048
     Dates: start: 20041124
  13. CICLOSPORIN [Suspect]
     Dosage: 137.5 MG, 2X/DAY
     Dates: start: 20041126
  14. CICLOSPORIN [Suspect]
     Dosage: 125 MG, 2X/DAY
     Route: 048
     Dates: start: 20041209
  15. CICLOSPORIN [Suspect]
     Dosage: 137.5 MG, 2X/DAY
     Route: 048
     Dates: start: 20041216
  16. CICLOSPORIN [Suspect]
     Dosage: 125 MG, 2X/DAY
     Route: 048
     Dates: start: 20041221
  17. CICLOSPORIN [Suspect]
     Dosage: 125 MG, 2X/DAY
     Route: 048
     Dates: start: 20050222
  18. CICLOSPORIN [Suspect]
     Dosage: 137.5 MG, 2X/DAY
     Route: 048
     Dates: start: 20050322
  19. CICLOSPORIN [Suspect]
     Dosage: 112.5 MG, 2X/DAY
     Route: 048
     Dates: start: 20050324
  20. CICLOSPORIN [Suspect]
     Dosage: 100 MG, 2X/DAY
     Dates: start: 20050414
  21. AMOXICILLIN [Concomitant]
     Dosage: 1000 MG, 2X/DAY
     Route: 048
     Dates: start: 20050109
  22. AMOXICILLIN [Concomitant]
     Dosage: 500 MG, 3X/DAY
     Route: 048
     Dates: start: 20050111
  23. AMOXICILLIN [Concomitant]
     Dosage: 500 MG, 3X/DAY
     Route: 048
     Dates: start: 20050121
  24. AMOXICILLIN [Concomitant]
     Dosage: 500 MG, 2X/DAY
     Route: 048
     Dates: start: 20050220, end: 20050221
  25. GANCICLOVIR [Concomitant]
     Dosage: 500 MG, 1X/DAY
     Route: 048
     Dates: start: 20041124
  26. GANCICLOVIR [Concomitant]
     Dosage: 500 MG, 2X/DAY
     Dates: start: 20041125
  27. GANCICLOVIR [Concomitant]
     Dosage: 500 MG, 3X/DAY
     Dates: start: 20041130
  28. GANCICLOVIR [Concomitant]
     Dosage: 250 MG, 4X/DAY
     Route: 048
     Dates: start: 20050215, end: 20050222
  29. LISINOPRIL [Concomitant]
     Dosage: 5 MG, 1X/DAY
     Route: 048
     Dates: start: 20041206
  30. ACETYLSALICYLIC ACID [Concomitant]
     Dosage: 100 MG, 1X/DAY
     Route: 048
     Dates: start: 20041220, end: 20050313
  31. ACETYLSALICYLIC ACID [Concomitant]
     Dosage: 160 MG, 1X/DAY
     Route: 048
     Dates: start: 20050325
  32. ENOXAPARIN [Concomitant]
     Dosage: 20 MG, 1X/DAY
     Route: 058
     Dates: start: 20050119
  33. ENOXAPARIN [Concomitant]
     Dosage: 20 MG, 1X/DAY
     Route: 058
     Dates: start: 20050325
  34. PRAVASTATIN [Concomitant]
     Dosage: 10 MG, 1X/DAY
     Route: 048
     Dates: start: 20050323

REACTIONS (2)
  - Tendon rupture [Recovered/Resolved]
  - Renal cyst infection [Recovered/Resolved]
